FAERS Safety Report 10607558 (Version 3)
Quarter: 2014Q4

REPORT INFORMATION
  Report Type: Report from Study
  Country: JP (occurrence: JP)
  Receive Date: 20141125
  Receipt Date: 20141222
  Transmission Date: 20150529
  Serious: Yes (Hospitalization)
  Sender: FDA-Public Use
  Company Number: JP-SA-2014SA144725

PATIENT
  Sex: Male
  Weight: 59.8 kg

DRUGS (22)
  1. ACETYLSALICYLIC ACID [Concomitant]
     Active Substance: ASPIRIN
     Indication: PERIPHERAL ARTERIAL OCCLUSIVE DISEASE
     Route: 048
     Dates: start: 20121018
  2. AMARYL [Concomitant]
     Active Substance: GLIMEPIRIDE
     Indication: DIABETES MELLITUS
     Route: 048
  3. AMLODIPINE [Concomitant]
     Active Substance: AMLODIPINE BESYLATE
     Indication: HYPERTENSION
     Route: 048
  4. RENIVACE [Concomitant]
     Active Substance: ENALAPRIL
     Indication: HYPERTENSION
     Route: 048
  5. TAKEPRON [Concomitant]
     Active Substance: LANSOPRAZOLE
     Indication: GASTRIC ULCER
     Route: 048
  6. MUCOSAL [Concomitant]
     Indication: ASTHMA
     Route: 048
  7. PLAVIX [Suspect]
     Active Substance: CLOPIDOGREL BISULFATE
     Indication: PERIPHERAL ARTERIAL OCCLUSIVE DISEASE
     Route: 048
     Dates: start: 20131002
  8. ALL OTHER THERAPEUTIC PRODUCTS [Concomitant]
     Active Substance: UNSPECIFIED INGREDIENT
     Indication: ARRHYTHMIA
     Route: 048
  9. ALL OTHER THERAPEUTIC PRODUCTS [Concomitant]
     Active Substance: UNSPECIFIED INGREDIENT
     Indication: GASTRIC ULCER
  10. ALL OTHER THERAPEUTIC PRODUCTS [Concomitant]
     Active Substance: UNSPECIFIED INGREDIENT
     Indication: ASTHMA
     Route: 048
  11. SPIRONOLACTONE. [Concomitant]
     Active Substance: SPIRONOLACTONE
     Indication: HYPERTENSION
     Route: 048
  12. EPINASTINE HYDROCHLORIDE. [Concomitant]
     Active Substance: EPINASTINE HYDROCHLORIDE
     Indication: ASTHMA
     Route: 048
  13. MUCODYNE [Concomitant]
     Active Substance: CARBOCYSTEINE
     Indication: ASTHMA
     Route: 048
  14. BERAPROST SODIUM [Concomitant]
     Active Substance: BERAPROST SODIUM
     Indication: PERIPHERAL ARTERIAL OCCLUSIVE DISEASE
     Route: 048
  15. ALL OTHER THERAPEUTIC PRODUCTS [Concomitant]
     Active Substance: UNSPECIFIED INGREDIENT
     Route: 048
  16. EPALRESTAT [Concomitant]
     Active Substance: EPALRESTAT
     Route: 048
  17. ACINON [Concomitant]
     Active Substance: NIZATIDINE
     Indication: GASTRIC ULCER
     Route: 048
  18. HYPEN [Concomitant]
     Active Substance: ETODOLAC
     Indication: OSTEOARTHRITIS
     Route: 048
  19. KINEDAK [Concomitant]
     Active Substance: EPALRESTAT
     Indication: DIABETES MELLITUS
     Route: 048
  20. HERBAL NOS [Concomitant]
     Active Substance: HERBALS
     Indication: GASTRIC ULCER
     Route: 048
  21. HERBAL NOS [Concomitant]
     Active Substance: HERBALS
     Indication: DIABETES MELLITUS
     Route: 048
  22. HERBAL NOS [Concomitant]
     Active Substance: HERBALS
     Indication: HYPERTENSION
     Route: 048

REACTIONS (4)
  - Thrombotic cerebral infarction [Recovered/Resolved]
  - Intermittent claudication [Recovering/Resolving]
  - Peripheral artery restenosis [Recovered/Resolved]
  - Drug ineffective [Unknown]

NARRATIVE: CASE EVENT DATE: 20140814
